FAERS Safety Report 4853977-4 (Version None)
Quarter: 2005Q4

REPORT INFORMATION
  Report Type: 
  Country: None (occurrence: None)
  Receive Date: 20051213
  Receipt Date: 20051128
  Transmission Date: 20060501
  Serious: Yes (Hospitalization, Other)
  Sender: FDA-Public Use
  Company Number: US_0507119890

PATIENT
  Age: 46 Year

DRUGS (30)
  1. ZYPREXA [Suspect]
     Indication: BIPOLAR I DISORDER
     Dosage: SEE IMAGE
     Dates: start: 19971119, end: 19990125
  2. ZYPREXA [Suspect]
     Indication: BIPOLAR I DISORDER
     Dosage: SEE IMAGE
     Dates: start: 19990126, end: 19990811
  3. ZYPREXA [Suspect]
     Indication: BIPOLAR I DISORDER
     Dosage: SEE IMAGE
     Dates: start: 19990812, end: 19990907
  4. ZYPREXA [Suspect]
     Indication: BIPOLAR I DISORDER
     Dosage: SEE IMAGE
     Dates: start: 19990908, end: 19990930
  5. ZYPREXA [Suspect]
     Indication: BIPOLAR I DISORDER
     Dosage: SEE IMAGE
     Dates: start: 19991001, end: 20020130
  6. ZYPREXA [Suspect]
     Indication: BIPOLAR I DISORDER
     Dosage: SEE IMAGE
     Dates: start: 20020131, end: 20020422
  7. ZYPREXA [Suspect]
     Indication: BIPOLAR I DISORDER
     Dosage: SEE IMAGE
     Dates: start: 20020423, end: 20020820
  8. ZYPREXA [Suspect]
     Indication: BIPOLAR I DISORDER
     Dosage: SEE IMAGE
     Dates: start: 20020821, end: 20031024
  9. ZYPREXA [Suspect]
     Indication: BIPOLAR I DISORDER
     Dosage: SEE IMAGE
     Dates: start: 20031025, end: 20031219
  10. ZYPREXA [Suspect]
     Indication: BIPOLAR I DISORDER
     Dosage: SEE IMAGE
     Dates: start: 20031220, end: 20040420
  11. ZYPREXA [Suspect]
     Indication: BIPOLAR I DISORDER
     Dosage: SEE IMAGE
     Dates: start: 20040421, end: 20040901
  12. SERZONE [Concomitant]
  13. ZOLOFT [Concomitant]
  14. TRAZODONE HCL [Concomitant]
  15. VASOTEC [Concomitant]
  16. EFFEXOR [Concomitant]
  17. VIOXX    /USA/ (ROFECOXIB) [Concomitant]
  18. DILANTIN [Concomitant]
  19. ISOSORBIDE (ISOSORBIDE) [Concomitant]
  20. PLAVIX [Concomitant]
  21. BUPROPION HCL [Concomitant]
  22. BUSPAR    /AUS/ (BUSPIRONE HYDROCHLORIDE) [Concomitant]
  23. TOPAMAX    /AUS/ (TOPIRAMATE) [Concomitant]
  24. CRESTOR [Concomitant]
  25. TRICOR [Concomitant]
  26. TRICOR [Concomitant]
  27. NEURONTIN [Concomitant]
  28. LEXAPRO     /USA/ (ESCITALOPRAM) [Concomitant]
  29. PROZAC (FLUOXETINE HYDROCHLORIDE UNKNOWN FORMULATION) [Concomitant]
  30. SYMBYAX (OLANZAPINE AND FLUOXETINE HYDROCHLORIDE) [Concomitant]

REACTIONS (12)
  - ACUTE CORONARY SYNDROME [None]
  - ACUTE MYOCARDIAL INFARCTION [None]
  - ALANINE AMINOTRANSFERASE INCREASED [None]
  - ARTERIOSCLEROSIS [None]
  - ARTERIOSCLEROSIS CORONARY ARTERY [None]
  - ASPARTATE AMINOTRANSFERASE INCREASED [None]
  - BLOOD ALKALINE PHOSPHATASE INCREASED [None]
  - BLOOD CHOLESTEROL INCREASED [None]
  - BLOOD SODIUM INCREASED [None]
  - BLOOD TRIGLYCERIDES INCREASED [None]
  - DIABETES MELLITUS NON-INSULIN-DEPENDENT [None]
  - GLYCOSYLATED HAEMOGLOBIN INCREASED [None]
